FAERS Safety Report 4712471-1 (Version None)
Quarter: 2005Q2

REPORT INFORMATION
  Report Type: 
  Country: None (occurrence: None)
  Receive Date: 20050629
  Receipt Date: 20050329
  Transmission Date: 20051028
  Serious: No
  Sender: FDA-Public Use
  Company Number: 05P-163-0295475-00

PATIENT
  Age: 74 Year
  Sex: Female

DRUGS (8)
  1. HUMIRA [Suspect]
     Indication: RHEUMATOID ARTHRITIS
     Dosage: 40 MG, 1 IN 2 WK, SUBCUTANEOUS
     Route: 058
     Dates: start: 20030101
  2. PREDNISONE [Concomitant]
  3. METHOTREXATE [Concomitant]
  4. HYDROCHLOROQUINE PHOSPHATE [Concomitant]
  5. ESOMEPRAZOLE [Concomitant]
  6. RISEDRONATE SODIUM [Concomitant]
  7. FOLIC ACID [Concomitant]
  8. PROVELLA-14 [Concomitant]

REACTIONS (1)
  - ACCIDENTAL OVERDOSE [None]
